FAERS Safety Report 5769943-0 (Version None)
Quarter: 2008Q2

REPORT INFORMATION
  Report Type: 
  Country: None (occurrence: None)
  Receive Date: 20080613
  Receipt Date: 20080414
  Transmission Date: 20081010
  Serious: No
  Sender: FDA-Public Use
  Company Number: US-ABBOTT-08P-163-0447322-00

PATIENT
  Sex: Female
  Weight: 70.37 kg

DRUGS (6)
  1. HUMIRA [Suspect]
     Indication: CROHN'S DISEASE
     Route: 058
     Dates: start: 20070725, end: 20070725
  2. HUMIRA [Suspect]
     Route: 058
  3. HUMIRA [Suspect]
     Route: 058
  4. MESALAMINE [Concomitant]
     Indication: CROHN'S DISEASE
     Dosage: 2 PILLS 3 TIMES DAILY
     Route: 048
  5. HYOSCYAMINE SULFATE [Concomitant]
     Indication: CROHN'S DISEASE
     Route: 048
  6. IMODIUM [Concomitant]
     Indication: CROHN'S DISEASE
     Route: 048

REACTIONS (9)
  - ABSCESS INTESTINAL [None]
  - BRONCHITIS [None]
  - DRUG DOSE OMISSION [None]
  - FISTULA [None]
  - FISTULA DISCHARGE [None]
  - INFLUENZA LIKE ILLNESS [None]
  - POLYMENORRHOEA [None]
  - PROCEDURAL COMPLICATION [None]
  - PYREXIA [None]
